FAERS Safety Report 5685273-X (Version None)
Quarter: 2008Q1

REPORT INFORMATION
  Report Type: 
  Country: None (occurrence: None)
  Receive Date: 20080328
  Receipt Date: 20080321
  Transmission Date: 20080703
  Serious: Yes (Hospitalization)
  Sender: FDA-Public Use
  Company Number: US-GILEAD-2008-0015843

PATIENT
  Sex: Female

DRUGS (8)
  1. LETAIRIS [Suspect]
     Indication: PULMONARY HYPERTENSION
     Route: 048
     Dates: start: 20080125
  2. ELAVIL [Concomitant]
     Route: 048
  3. REVATIO [Concomitant]
     Route: 048
  4. LIPITOR [Concomitant]
     Route: 048
  5. LEXAPRO [Concomitant]
     Route: 048
  6. ASPIRIN [Concomitant]
     Route: 048
  7. PHRENLIN [Concomitant]
     Dosage: BUTALBLITAL 50MG/ACETAMINOPHEN 325 MG
     Route: 048
  8. LASIX [Concomitant]
     Route: 048

REACTIONS (2)
  - LUNG DISORDER [None]
  - PNEUMONIA [None]
